FAERS Safety Report 7493340-3 (Version None)
Quarter: 2011Q2

REPORT INFORMATION
  Report Type: 
  Country: None (occurrence: None)
  Receive Date: 20110520
  Receipt Date: 20110516
  Transmission Date: 20111010
  Serious: Yes (Other)
  Sender: FDA-Public Use
  Company Number: US-PFIZER INC-2011032287

PATIENT
  Sex: Female

DRUGS (1)
  1. CHANTIX [Suspect]
     Indication: SMOKING CESSATION THERAPY
     Dosage: STARTER PACK, CONTINUOUS PACK
     Dates: start: 20070531, end: 20080714

REACTIONS (3)
  - ULNA FRACTURE [None]
  - FALL [None]
  - LOSS OF CONSCIOUSNESS [None]
